FAERS Safety Report 17222732 (Version 2)
Quarter: 2020Q2

REPORT INFORMATION
  Report Type: Spontaneous
  Country: ES (occurrence: ES)
  Receive Date: 20200102
  Receipt Date: 20200423
  Transmission Date: 20200713
  Serious: Yes (Other)
  Sender: FDA-Public Use
  Company Number: ES-ROCHE-2506236

PATIENT
  Age: 38 Year
  Sex: Male

DRUGS (1)
  1. OCRELIZUMAB. [Suspect]
     Active Substance: OCRELIZUMAB
     Indication: PROGRESSIVE MULTIPLE SCLEROSIS
     Dosage: 600 MG IN TWO DOSES OF 300 MG SEPERATED BY 15 DAYS.
     Route: 042
     Dates: start: 201811

REACTIONS (1)
  - Febrile neutropenia [Recovering/Resolving]
